FAERS Safety Report 22187558 (Version 2)
Quarter: 2023Q2

REPORT INFORMATION
  Report Type: Spontaneous
  Country: US (occurrence: US)
  Receive Date: 20230407
  Receipt Date: 20230512
  Transmission Date: 20230722
  Serious: Yes (Other)
  Sender: FDA-Public Use
  Company Number: US-GILEAD-2023-0623017

PATIENT
  Age: 72 Year
  Sex: Female
  Weight: 52.8 kg

DRUGS (1)
  1. YESCARTA [Suspect]
     Active Substance: AXICABTAGENE CILOLEUCEL
     Indication: Diffuse large B-cell lymphoma
     Dosage: UNK
     Route: 042
     Dates: start: 20221104

REACTIONS (16)
  - Cytokine release syndrome [Unknown]
  - Hypoxia [Unknown]
  - Acute kidney injury [Unknown]
  - Immune effector cell-associated neurotoxicity syndrome [Unknown]
  - Depressed level of consciousness [Unknown]
  - Pyrexia [Unknown]
  - Hypotension [Unknown]
  - Fatigue [Unknown]
  - Pleural effusion [Unknown]
  - Aspartate aminotransferase increased [Unknown]
  - Headache [Unknown]
  - Tachycardia [Unknown]
  - Somnolence [Unknown]
  - Malaise [Unknown]
  - Hypoalbuminaemia [Unknown]
  - Myalgia [Unknown]

NARRATIVE: CASE EVENT DATE: 20221105
